FAERS Safety Report 24172859 (Version 1)
Quarter: 2024Q3

REPORT INFORMATION
  Report Type: Spontaneous
  Country: FR (occurrence: FR)
  Receive Date: 20240805
  Receipt Date: 20240805
  Transmission Date: 20241016
  Serious: Yes (Death, Other)
  Sender: AMGEN
  Company Number: FR-ROCHE-2926713

PATIENT
  Age: 77 Year
  Sex: Male
  Weight: 54 kg

DRUGS (5)
  1. BEVACIZUMAB [Suspect]
     Active Substance: BEVACIZUMAB
     Indication: Hepatocellular carcinoma
     Dosage: 800 MILLIGRAM, Q3WK (ON 28/SEP/2021, MOST RECENT DOSE 400 MG PRIOR TO EVENT.)
     Route: 042
     Dates: start: 20210928
  2. ATEZOLIZUMAB [Concomitant]
     Active Substance: ATEZOLIZUMAB
     Indication: Hepatocellular carcinoma
     Dosage: UNK
     Route: 040
  3. ATEZOLIZUMAB [Concomitant]
     Active Substance: ATEZOLIZUMAB
     Dosage: ON 28/SEP/2021, MOST RECENT DOSE 1220 MG PRIOR TO EVENT.
     Route: 040
     Dates: start: 20210928
  4. TITANOREINE [Concomitant]
     Active Substance: CARRAGEENAN\TITANIUM\ZINC
     Indication: Haemorrhoids
     Dosage: 1 OTHER
     Route: 061
     Dates: start: 20210916, end: 20210923
  5. LERCANIDIPINE [Concomitant]
     Active Substance: LERCANIDIPINE
     Indication: Hypertension
     Dosage: UNK
     Route: 065
     Dates: start: 20100901, end: 20220505

REACTIONS (2)
  - Death [Fatal]
  - Amnestic disorder [Recovered/Resolved]

NARRATIVE: CASE EVENT DATE: 20210929
